FAERS Safety Report 7867767-1 (Version None)
Quarter: 2011Q4

REPORT INFORMATION
  Report Type: 
  Country: None (occurrence: None)
  Receive Date: 20111028
  Receipt Date: 20111024
  Transmission Date: 20120403
  Serious: Yes (Life-Threatening, Hospitalization)
  Sender: FDA-Public Use
  Company Number: JP-CEPHALON-2011005562

PATIENT
  Sex: Female
  Weight: 48 kg

DRUGS (8)
  1. VORICONAZOLE [Concomitant]
     Dates: start: 20110102, end: 20110411
  2. SULFAMETHOXAZOLE AND TRIMETHOPRIM [Concomitant]
  3. ACYCLOVIR [Concomitant]
  4. ENTECAVIR [Concomitant]
  5. URSODIOL [Concomitant]
     Dates: start: 20110425, end: 20110503
  6. BENDAMUSTINE HCL [Suspect]
     Route: 042
     Dates: start: 20110304
  7. DEXTROMETHORPHAN HYDROBROMIDE [Concomitant]
     Dates: start: 20110205, end: 20110503
  8. BENDAMUSTINE HCL [Suspect]
     Indication: MANTLE CELL LYMPHOMA
     Route: 042
     Dates: start: 20101221, end: 20101222

REACTIONS (4)
  - CYTOMEGALOVIRUS INFECTION [None]
  - LIVER DISORDER [None]
  - SEPSIS [None]
  - PANCYTOPENIA [None]
